FAERS Safety Report 5732460-8 (Version None)
Quarter: 2008Q2

REPORT INFORMATION
  Report Type: 
  Country: None (occurrence: None)
  Receive Date: 20080508
  Receipt Date: 20080428
  Transmission Date: 20081010
  Serious: Yes (Other)
  Sender: FDA-Public Use
  Company Number: HQWYE590630MAR06

PATIENT
  Sex: Female
  Weight: 104.42 kg

DRUGS (1)
  1. PREMPRO [Suspect]

REACTIONS (5)
  - ASTHMA [None]
  - DEEP VEIN THROMBOSIS [None]
  - PULMONARY EMBOLISM [None]
  - PULMONARY HYPERTENSION [None]
  - THROMBOSIS [None]
